FAERS Safety Report 19129650 (Version 1)
Quarter: 2021Q2

REPORT INFORMATION
  Report Type: Spontaneous
  Country: US (occurrence: US)
  Receive Date: 20210413
  Receipt Date: 20210413
  Transmission Date: 20210717
  Serious: No
  Sender: FDA-Public Use
  Company Number: US-TOPROL-202000024

PATIENT
  Age: 84 Year
  Sex: Male
  Weight: 79 kg

DRUGS (23)
  1. METOPROLOL ER 50MG LEGACY [Suspect]
     Active Substance: METOPROLOL SUCCINATE
     Dates: start: 202004, end: 202009
  2. CLOPIDOGREL [Concomitant]
     Active Substance: CLOPIDOGREL BISULFATE
     Dosage: 50 000
  3. THERATEARS [Concomitant]
     Active Substance: CARBOXYMETHYLCELLULOSE SODIUM
  4. TAMSULOSIN [Concomitant]
     Active Substance: TAMSULOSIN
  5. TYLENOL [Concomitant]
     Active Substance: ACETAMINOPHEN
  6. MELATONIN [Concomitant]
     Active Substance: MELATONIN
  7. PURELAX [Concomitant]
     Active Substance: POLYETHYLENE GLYCOL 3350
     Dosage: AS NEEDED
  8. EZETIMIBE. [Concomitant]
     Active Substance: EZETIMIBE
  9. AMLODIPINE [Concomitant]
     Active Substance: AMLODIPINE BESYLATE
  10. CLINDAMYCIN. [Concomitant]
     Active Substance: CLINDAMYCIN
     Dosage: 50 000
  11. METOPROLOL ER 50MG LEGACY [Suspect]
     Active Substance: METOPROLOL SUCCINATE
     Dosage: 50 MG DAILY
     Dates: start: 202009
  12. AMLODIPINE [Concomitant]
     Active Substance: AMLODIPINE BESYLATE
  13. ASPIRIN. [Concomitant]
     Active Substance: ASPIRIN
  14. OMEPRAZOLE. [Concomitant]
     Active Substance: OMEPRAZOLE
  15. DUTASTERIDE. [Concomitant]
     Active Substance: DUTASTERIDE
  16. SALINE NASAL SPRAY [Concomitant]
     Active Substance: SODIUM CHLORIDE
  17. HYDROXYCHLOROQUINE [Concomitant]
     Active Substance: HYDROXYCHLOROQUINE
  18. BIOTIN [Concomitant]
     Active Substance: BIOTIN
  19. PRAVASTATIN. [Concomitant]
     Active Substance: PRAVASTATIN
  20. FLUTICASONE. [Concomitant]
     Active Substance: FLUTICASONE
  21. ZYRTEC [Concomitant]
     Active Substance: CETIRIZINE HYDROCHLORIDE
  22. VITD2 [Concomitant]
     Dosage: 50 000
  23. MELATONIN [Concomitant]
     Active Substance: MELATONIN

REACTIONS (6)
  - Mood altered [Unknown]
  - Limb discomfort [Unknown]
  - Dizziness [Unknown]
  - Gait disturbance [Unknown]
  - Blood pressure inadequately controlled [Unknown]
  - Dyspnoea [Unknown]

NARRATIVE: CASE EVENT DATE: 202004
